FAERS Safety Report 6400897-X (Version None)
Quarter: 2009Q4

REPORT INFORMATION
  Report Type: 
  Country: None (occurrence: None)
  Receive Date: 20091009
  Receipt Date: 20090925
  Transmission Date: 20100525
  Serious: No
  Sender: FDA-Public Use
  Company Number: C-09-0219-W

PATIENT
  Age: 62 Year
  Sex: Male
  Weight: 88.4514 kg

DRUGS (6)
  1. AZITHROMYCIN [Suspect]
     Indication: ORTHODONTIC PROCEDURE
     Dosage: 2 TAB DAY1, 1TAB QD 047
     Dates: start: 20090812, end: 20090817
  2. ASPIRIN [Concomitant]
  3. MULTI-VITAMINS [Concomitant]
  4. CALCIUM [Concomitant]
  5. VITAMIN D [Concomitant]
  6. FISH OIL [Concomitant]

REACTIONS (2)
  - HEADACHE [None]
  - TINNITUS [None]
